FAERS Safety Report 24044799 (Version 1)
Quarter: 2024Q3

REPORT INFORMATION
  Report Type: Spontaneous
  Country: GB (occurrence: GB)
  Receive Date: 20240703
  Receipt Date: 20240703
  Transmission Date: 20241017
  Serious: Yes (Other)
  Sender: RANBAXY
  Company Number: GB-MHRA-MED-202406181534344950-HFLYR

PATIENT
  Age: 41 Year
  Sex: Male
  Weight: 83 kg

DRUGS (2)
  1. CIPROFLOXACIN [Suspect]
     Active Substance: CIPROFLOXACIN
     Indication: Prostatitis
     Dosage: 500MG TWICE DAILY
     Route: 065
     Dates: start: 20240327, end: 20240410
  2. TESTOSTERONE [Concomitant]
     Active Substance: TESTOSTERONE
     Indication: Adverse drug reaction
     Dosage: UNK
     Route: 065
     Dates: start: 20220922

REACTIONS (2)
  - Medication error [Unknown]
  - Tendon pain [Not Recovered/Not Resolved]

NARRATIVE: CASE EVENT DATE: 20240401
